FAERS Safety Report 5977935-1 (Version None)
Quarter: 2008Q4

REPORT INFORMATION
  Report Type: 
  Country: None (occurrence: None)
  Receive Date: 20081203
  Receipt Date: 20081201
  Transmission Date: 20090506
  Serious: Yes (Other)
  Sender: FDA-Public Use
  Company Number: US-ROXANE LABORATORIES, INC.-2008-RO-00312RO

PATIENT
  Age: 61 Year
  Sex: Female

DRUGS (7)
  1. METHOTREXATE [Suspect]
     Indication: RHEUMATOID ARTHRITIS
  2. ETOPOSIDE [Concomitant]
     Indication: DIFFUSE LARGE B-CELL LYMPHOMA STAGE III
  3. PREDNISONE TAB [Concomitant]
     Indication: DIFFUSE LARGE B-CELL LYMPHOMA STAGE III
  4. VINCRISTINE [Concomitant]
     Indication: DIFFUSE LARGE B-CELL LYMPHOMA STAGE III
  5. CYCLOPHOSPHAMIDE [Concomitant]
     Indication: DIFFUSE LARGE B-CELL LYMPHOMA STAGE III
  6. DOXORUBICIN HCL [Concomitant]
     Indication: DIFFUSE LARGE B-CELL LYMPHOMA STAGE III
  7. RITUXIMAB [Concomitant]
     Indication: DIFFUSE LARGE B-CELL LYMPHOMA STAGE III

REACTIONS (1)
  - DIFFUSE LARGE B-CELL LYMPHOMA STAGE III [None]
